FAERS Safety Report 8830845 (Version 2)
Quarter: 2012Q4

REPORT INFORMATION
  Report Type: 
  Country: US (occurrence: US)
  Receive Date: 20121009
  Receipt Date: 20121122
  Transmission Date: 20130627
  Serious: No
  Sender: FDA-Public Use
  Company Number: US-PFIZER INC-2012246622

PATIENT
  Age: 80 Year
  Sex: Female
  Weight: 58.05 kg

DRUGS (2)
  1. AMLODIPINE BESILATE [Suspect]
     Indication: BLOOD PRESSURE ABNORMAL
     Dosage: 2.5 mg, daily
  2. LEVOTHYROXINE SODIUM [Concomitant]
     Indication: THYROID DISORDER
     Dosage: 112 ug, daily

REACTIONS (3)
  - Drug hypersensitivity [Unknown]
  - Pruritus [Recovered/Resolved]
  - Rash [Recovered/Resolved]
